FAERS Safety Report 9208230 (Version 1)
Quarter: 2013Q2

REPORT INFORMATION
  Report Type: Spontaneous
  Country: GB (occurrence: GB)
  Receive Date: 20130403
  Receipt Date: 20130403
  Transmission Date: 20140414
  Serious: Yes (Other)
  Sender: FDA-Public Use
  Company Number: GB-B.I. PHARMACEUTICALS,INC./RIDGEFIELD-2013-BI-09111YA

PATIENT
  Age: 75 Year
  Sex: Male
  Weight: 68.94 kg

DRUGS (7)
  1. TAMSULOSINA [Suspect]
     Indication: URINARY TRACT DISORDER
     Route: 048
     Dates: start: 20130201, end: 20130214
  2. DIAZEPAM (DIAZEPAM) [Concomitant]
  3. ENALAPRIL MALEATE (ENALAPRIL MALEATE) [Concomitant]
  4. FUROSEMIDE (FUROSEMIDE) [Concomitant]
  5. NIFEDIPINE (NIFEDIPINE) [Concomitant]
  6. QVAR (BECLOMETASONE DIPROPIONATE) [Concomitant]
  7. VENTOLIN (SALBUTAMOL) [Concomitant]

REACTIONS (2)
  - Feeling hot [Not Recovered/Not Resolved]
  - Sensation of pressure [Not Recovered/Not Resolved]
